FAERS Safety Report 19507454 (Version 4)
Quarter: 2021Q4

REPORT INFORMATION
  Report Type: Spontaneous
  Country: JP (occurrence: JP)
  Receive Date: 20210708
  Receipt Date: 20211023
  Transmission Date: 20220303
  Serious: Yes (Death, Hospitalization, Other)
  Sender: FDA-Public Use
  Company Number: JP-JNJFOC-20210664474

PATIENT
  Age: 67 Year
  Sex: Male

DRUGS (5)
  1. OPSUMIT [Suspect]
     Active Substance: MACITENTAN
     Indication: Pulmonary arterial hypertension
     Route: 048
  2. UPTRAVI [Suspect]
     Active Substance: SELEXIPAG
     Indication: Pulmonary arterial hypertension
     Dosage: END DATE //2021
     Route: 048
     Dates: start: 202105
  3. BERAPROST SODIUM [Concomitant]
     Active Substance: BERAPROST SODIUM
     Indication: Product used for unknown indication
     Dosage: DOSE UNKNOWN
     Route: 048
  4. ADCIRCA [Concomitant]
     Active Substance: TADALAFIL
     Indication: Pulmonary arterial hypertension
     Route: 048
  5. OXYGEN [Concomitant]
     Active Substance: OXYGEN
     Dosage: 3-5 L
     Route: 055

REACTIONS (3)
  - Pneumonia aspiration [Fatal]
  - Oxygen saturation decreased [Recovered/Resolved]
  - Pulmonary arterial hypertension [Not Recovered/Not Resolved]

NARRATIVE: CASE EVENT DATE: 20210516
